FAERS Safety Report 11180285 (Version 1)
Quarter: 2015Q2

REPORT INFORMATION
  Report Type: Spontaneous
  Country: IE (occurrence: IE)
  Receive Date: 20150611
  Receipt Date: 20150611
  Transmission Date: 20150821
  Serious: Yes (Death, Other)
  Sender: FDA-Public Use
  Company Number: IE-PFIZER INC-2015193030

PATIENT
  Age: 84 Year
  Sex: Female

DRUGS (4)
  1. TARGIN [Suspect]
     Active Substance: NALOXONE HYDROCHLORIDE\OXYCODONE HYDROCHLORIDE
     Indication: PAIN MANAGEMENT
  2. LYRICA [Suspect]
     Active Substance: PREGABALIN
     Indication: PALLIATIVE CARE
     Dosage: 200 MG, DAILY
  3. LYRICA [Suspect]
     Active Substance: PREGABALIN
     Indication: PAIN MANAGEMENT
  4. TARGIN [Suspect]
     Active Substance: NALOXONE HYDROCHLORIDE\OXYCODONE HYDROCHLORIDE
     Indication: PALLIATIVE CARE
     Dosage: 30 MG, 2X/DAY

REACTIONS (3)
  - Death [Fatal]
  - Pulmonary embolism [Unknown]
  - Deep vein thrombosis [Unknown]
